FAERS Safety Report 24642562 (Version 1)
Quarter: 2024Q4

REPORT INFORMATION
  Report Type: Spontaneous
  Country: GB (occurrence: GB)
  Receive Date: 20241120
  Receipt Date: 20241120
  Transmission Date: 20250114
  Serious: Yes (Other)
  Sender: GRIFOLS
  Company Number: GB-IGSA-BIG0031420

PATIENT
  Age: 60 Year
  Sex: Female
  Weight: 40 kg

DRUGS (16)
  1. FLEBOGAMMA DIF [Suspect]
     Active Substance: HUMAN IMMUNOGLOBULIN G
     Indication: Immunodeficiency common variable
     Dosage: 45 GRAM, Q.3WK.
     Route: 042
     Dates: start: 20241007
  2. FLEBOGAMMA DIF [Suspect]
     Active Substance: HUMAN IMMUNOGLOBULIN G
     Dosage: UNK
     Route: 042
  3. DEXAMETHASONE [Concomitant]
     Active Substance: DEXAMETHASONE
  4. SODIUM CHLORIDE [Concomitant]
     Active Substance: SODIUM CHLORIDE
  5. SULFADIAZINE [Concomitant]
     Active Substance: SULFADIAZINE
  6. MEROPENEM [Concomitant]
     Active Substance: MEROPENEM
  7. CARBOCYSTEINE [Concomitant]
     Active Substance: CARBOCYSTEINE
  8. CALCIUM CARBONATE\CHOLECALCIFEROL [Concomitant]
     Active Substance: CALCIUM CARBONATE\CHOLECALCIFEROL
  9. COLISTIN SULFATE [Concomitant]
     Active Substance: COLISTIN SULFATE
  10. ENOXAPARIN [Concomitant]
     Active Substance: ENOXAPARIN
  11. PYRIMETHAMINE [Concomitant]
     Active Substance: PYRIMETHAMINE
  12. BUMETANIDE [Concomitant]
     Active Substance: BUMETANIDE
  13. DAPAGLIFLOZIN [Concomitant]
     Active Substance: DAPAGLIFLOZIN
  14. LEUCOVORIN [Concomitant]
     Active Substance: LEUCOVORIN\LEUCOVORIN CALCIUM
  15. LANSOPRAZOLE [Concomitant]
     Active Substance: LANSOPRAZOLE
  16. SPIRONOLACTONE [Concomitant]
     Active Substance: SPIRONOLACTONE

REACTIONS (2)
  - Toxoplasma serology positive [Unknown]
  - Brain abscess [Unknown]
